FAERS Safety Report 23713307 (Version 2)
Quarter: 2024Q3

REPORT INFORMATION
  Report Type: Spontaneous
  Country: CA (occurrence: CA)
  Receive Date: 20240405
  Receipt Date: 20240701
  Transmission Date: 20241017
  Serious: Yes (Other)
  Sender: CARA THERAPEUTICS
  Company Number: CA-Vifor Pharma-VIT-2024-02847

PATIENT
  Sex: Male

DRUGS (1)
  1. KORSUVA [Suspect]
     Active Substance: DIFELIKEFALIN ACETATE
     Indication: Product used for unknown indication
     Dosage: UNK
     Route: 040

REACTIONS (6)
  - Limb amputation [Unknown]
  - Autonomic nervous system imbalance [Unknown]
  - Gangrene [Unknown]
  - Delirium [Unknown]
  - Somnolence [Unknown]
  - Mental status changes [Unknown]
